FAERS Safety Report 16298781 (Version 1)
Quarter: 2019Q2

REPORT INFORMATION
  Report Type: Spontaneous
  Country: TH (occurrence: TH)
  Receive Date: 20190510
  Receipt Date: 20190510
  Transmission Date: 20190711
  Serious: Yes (Hospitalization)
  Sender: FDA-Public Use
  Company Number: TH-FRESENIUS KABI-FK201905304

PATIENT
  Age: 52 Year
  Sex: Male

DRUGS (1)
  1. GEMCITABINE [Suspect]
     Active Substance: GEMCITABINE\GEMCITABINE HYDROCHLORIDE
     Indication: CHOLANGIOCARCINOMA
     Dosage: ON DAYS 1, 8 AND 15
     Route: 065

REACTIONS (1)
  - Thrombotic microangiopathy [Recovering/Resolving]
